FAERS Safety Report 20779630 (Version 1)
Quarter: 2022Q2

REPORT INFORMATION
  Report Type: Spontaneous
  Country: US (occurrence: None)
  Receive Date: 20220503
  Receipt Date: 20220503
  Transmission Date: 20220721
  Serious: No
  Sender: FDA-Public Use
  Company Number: None

PATIENT
  Age: 71 Year
  Sex: Female

DRUGS (2)
  1. ESTRADIOL TRANSDERMAL SYSTEM [Suspect]
     Active Substance: ESTRADIOL
     Indication: Product used for unknown indication
     Dosage: OTHER QUANTITY : .025;?FREQUENCY : WEEKLY;?
     Route: 062
     Dates: start: 20220427
  2. Estradiol 0.025 mg [day patch [Concomitant]
     Dates: start: 20220427

REACTIONS (4)
  - Hot flush [None]
  - Mood swings [None]
  - Condition aggravated [None]
  - Product substitution issue [None]

NARRATIVE: CASE EVENT DATE: 19510427
